FAERS Safety Report 24610741 (Version 1)
Quarter: 2024Q4

REPORT INFORMATION
  Report Type: Report from Study
  Country: CN (occurrence: CN)
  Receive Date: 20241112
  Receipt Date: 20241112
  Transmission Date: 20250114
  Serious: Yes (Hospitalization)
  Sender: JOHNSON AND JOHNSON
  Company Number: CN-JNJFOC-20241116171

PATIENT
  Age: 59 Year
  Sex: Male

DRUGS (3)
  1. ZYTIGA [Suspect]
     Active Substance: ABIRATERONE ACETATE
     Indication: Prostate cancer metastatic
     Route: 048
     Dates: start: 20200819, end: 20210212
  2. PRUXELUTAMIDE [Suspect]
     Active Substance: PRUXELUTAMIDE
     Indication: Prostate cancer metastatic
     Route: 048
     Dates: start: 20200819, end: 20210212
  3. PREDNISONE ACETATE [Suspect]
     Active Substance: PREDNISONE ACETATE
     Indication: Prophylaxis
     Route: 048
     Dates: start: 20200819, end: 20210212

REACTIONS (6)
  - Pneumonia fungal [Recovered/Resolved]
  - Dizziness [Unknown]
  - Night sweats [Unknown]
  - Fatigue [Unknown]
  - Oedema peripheral [Unknown]
  - Muscular weakness [Unknown]

NARRATIVE: CASE EVENT DATE: 20200819
